FAERS Safety Report 4658513-3 (Version None)
Quarter: 2005Q2

REPORT INFORMATION
  Report Type: 
  Country: None (occurrence: None)
  Receive Date: 20050509
  Receipt Date: 20050428
  Transmission Date: 20051028
  Serious: Yes (Other)
  Sender: FDA-Public Use
  Company Number: 2005068265

PATIENT
  Sex: Female

DRUGS (1)
  1. CELEBREX [Suspect]
     Indication: ILL-DEFINED DISORDER
     Dates: start: 20020101, end: 20041201

REACTIONS (4)
  - CORONARY ARTERY OCCLUSION [None]
  - EMOTIONAL DISTRESS [None]
  - HEART INJURY [None]
  - PAIN [None]
